FAERS Safety Report 7701276-5 (Version None)
Quarter: 2011Q3

REPORT INFORMATION
  Report Type: 
  Country: None (occurrence: None)
  Receive Date: 20110822
  Receipt Date: 20110815
  Transmission Date: 20111222
  Serious: Yes (Death)
  Sender: FDA-Public Use
  Company Number: US-GLAXOSMITHKLINE-B0741117A

PATIENT
  Age: 53 Year
  Sex: Male
  Weight: 93.2 kg

DRUGS (3)
  1. AVANDAMET [Suspect]
     Indication: DIABETES MELLITUS
     Route: 048
     Dates: start: 20080613, end: 20100412
  2. LISINOPRIL [Concomitant]
     Dates: start: 20080613
  3. SIMAVASTATIN [Concomitant]

REACTIONS (3)
  - SUDDEN CARDIAC DEATH [None]
  - CORONARY ARTERY DISEASE [None]
  - MYOCARDIAL ISCHAEMIA [None]
